FAERS Safety Report 7966867-5 (Version None)
Quarter: 2011Q4

REPORT INFORMATION
  Report Type: 
  Country: None (occurrence: None)
  Receive Date: 20111209
  Receipt Date: 20111206
  Transmission Date: 20120403
  Serious: No
  Sender: FDA-Public Use
  Company Number: US-PFIZER INC-2011246975

PATIENT
  Sex: Female
  Weight: 83.9 kg

DRUGS (9)
  1. VERAPAMIL [Concomitant]
     Indication: HYPERTENSION
     Dosage: UNK
  2. FOLIC ACID [Concomitant]
     Dosage: UNK
  3. NEURONTIN [Suspect]
     Indication: FIBROMYALGIA
     Dosage: 300 MG, 6X/DAY
     Route: 048
     Dates: start: 20090101, end: 20100101
  4. LEVOTHYROXINE [Concomitant]
     Dosage: UNK
  5. MAXZIDE [Concomitant]
     Indication: DIURETIC THERAPY
     Dosage: UNK
  6. IBUPROFEN [Concomitant]
     Dosage: UNK
  7. LOTREL [Concomitant]
     Dosage: UNK
  8. LORTAB [Concomitant]
     Dosage: UNK
  9. NEURONTIN [Suspect]
     Indication: NEUROPATHY PERIPHERAL

REACTIONS (2)
  - FEELING ABNORMAL [None]
  - SOMNOLENCE [None]
